FAERS Safety Report 6711757-9 (Version None)
Quarter: 2010Q2

REPORT INFORMATION
  Report Type: 
  Country: None (occurrence: None)
  Receive Date: 20100505
  Receipt Date: 20100430
  Transmission Date: 20101027
  Serious: Yes (Hospitalization)
  Sender: FDA-Public Use
  Company Number: A0857769A

PATIENT
  Age: 51 Year
  Sex: Female
  Weight: 88.1 kg

DRUGS (9)
  1. AVANDIA [Suspect]
     Indication: DIABETES MELLITUS
     Dosage: 4MG PER DAY
     Route: 048
  2. AVANDAMET [Suspect]
     Indication: DIABETES MELLITUS
     Route: 048
  3. HYDROCHLOROTHIAZIDE [Concomitant]
  4. ASPIRIN [Concomitant]
  5. DIOVAN [Concomitant]
  6. VIOXX [Concomitant]
  7. GLUCOPHAGE [Concomitant]
  8. ESTRATEST [Concomitant]
  9. PEPCID [Concomitant]

REACTIONS (5)
  - ANGINA UNSTABLE [None]
  - CARDIAC FAILURE CONGESTIVE [None]
  - CARDIAC VALVE DISEASE [None]
  - CHEST PAIN [None]
  - DYSPNOEA [None]
